FAERS Safety Report 4569317-4 (Version None)
Quarter: 2005Q1

REPORT INFORMATION
  Report Type: 
  Country: None (occurrence: None)
  Receive Date: 20050201
  Receipt Date: 20050121
  Transmission Date: 20050727
  Serious: Yes (Hospitalization)
  Sender: FDA-Public Use
  Company Number: 2005US000102

PATIENT
  Age: 69 Year
  Sex: Female

DRUGS (12)
  1. ADENOSCAN [Suspect]
     Indication: SCAN MYOCARDIAL PERFUSION
     Dosage: INTRAVENOUS
     Route: 042
     Dates: start: 20050118, end: 20050118
  2. NIFEDIPINE [Concomitant]
  3. SPIRONOLACTONE [Concomitant]
  4. ALTACE [Concomitant]
  5. LASIX (FUROSEMIDE, FUROSEMIDE SODIUM) [Concomitant]
  6. LEXAPRO [Concomitant]
  7. SEROQUEL [Concomitant]
  8. METHOCABAMOL (METHOCARBAMOL) [Concomitant]
  9. PROMETHAZINE [Concomitant]
  10. ZOCOR [Concomitant]
  11. PLAVIX [Concomitant]
  12. POTASSIUM (POTASSIUM) [Concomitant]

REACTIONS (4)
  - ASTHENIA [None]
  - DYSARTHRIA [None]
  - HYPOAESTHESIA [None]
  - NEUROLOGICAL SYMPTOM [None]
